FAERS Safety Report 4498578-5 (Version None)
Quarter: 2004Q4

REPORT INFORMATION
  Report Type: 
  Country: None (occurrence: None)
  Receive Date: 20041108
  Receipt Date: 20041028
  Transmission Date: 20050328
  Serious: Yes (Hospitalization, Other)
  Sender: FDA-Public Use
  Company Number: 2004241889US

PATIENT
  Age: 74 Year
  Sex: Female
  Weight: 34.5 kg

DRUGS (1)
  1. CLEOCIN HCL [Suspect]
     Indication: INFECTION
     Dosage: 300 MG , QID, ORAL
     Route: 048
     Dates: start: 19950419, end: 19950502

REACTIONS (5)
  - ARRHYTHMIA [None]
  - CLOSTRIDIUM COLITIS [None]
  - DEHYDRATION [None]
  - INTESTINAL HYPOMOTILITY [None]
  - WEIGHT DECREASED [None]
